FAERS Safety Report 9326204 (Version 1)
Quarter: 2013Q2

REPORT INFORMATION
  Report Type: Report from Study
  Country: CA (occurrence: CA)
  Receive Date: 20130604
  Receipt Date: 20130604
  Transmission Date: 20140414
  Serious: Yes (Death, Hospitalization)
  Sender: FDA-Public Use
  Company Number: CA-B.I. PHARMACEUTICALS,INC./RIDGEFIELD-2013-CN-01037CN

PATIENT
  Sex: Male

DRUGS (1)
  1. CATAPRES [Suspect]
     Indication: PAIN
     Route: 037
     Dates: start: 201301

REACTIONS (2)
  - Obstructive uropathy [Fatal]
  - Rectal cancer metastatic [Unknown]
